FAERS Safety Report 16402928 (Version 5)
Quarter: 2023Q2

REPORT INFORMATION
  Report Type: Spontaneous
  Country: BG (occurrence: BG)
  Receive Date: 20190607
  Receipt Date: 20230403
  Transmission Date: 20230722
  Serious: Yes (Hospitalization, Other)
  Sender: FDA-Public Use
  Company Number: BG-BOEHRINGERINGELHEIM-2019-BI-024732

PATIENT
  Age: 82 Year
  Sex: Male
  Weight: 105 kg

DRUGS (6)
  1. PRADAXA [Suspect]
     Active Substance: DABIGATRAN ETEXILATE MESYLATE
     Indication: Atrial fibrillation
     Route: 065
     Dates: start: 20190531, end: 20190531
  2. PRADAXA [Suspect]
     Active Substance: DABIGATRAN ETEXILATE MESYLATE
     Route: 065
     Dates: start: 201906
  3. Carvedil 6.25 mg [Concomitant]
     Indication: Product used for unknown indication
     Route: 065
  4. Trifas [Concomitant]
     Indication: Product used for unknown indication
     Route: 065
  5. Milurit 100 mg [Concomitant]
     Indication: Product used for unknown indication
     Route: 065
  6. TORSEMIDE [Concomitant]
     Active Substance: TORSEMIDE
     Indication: Product used for unknown indication
     Route: 065

REACTIONS (1)
  - Ischaemic stroke [Recovered/Resolved]

NARRATIVE: CASE EVENT DATE: 20190531
